FAERS Safety Report 18339589 (Version 1)
Quarter: 2020Q4

REPORT INFORMATION
  Report Type: Spontaneous
  Country: US (occurrence: US)
  Receive Date: 20201002
  Receipt Date: 20201002
  Transmission Date: 20210113
  Serious: Yes (Hospitalization)
  Sender: FDA-Public Use
  Company Number: US-JNJFOC-A-NJ2020-207266

PATIENT
  Age: 52 Year
  Sex: Female
  Weight: 157.54 kg

DRUGS (4)
  1. VELETRI [Suspect]
     Active Substance: EPOPROSTENOL
     Indication: PULMONARY HYPERTENSION
     Dosage: 21.6 NG/KG, PER MIN
     Route: 042
     Dates: start: 20200708
  2. VELETRI [Suspect]
     Active Substance: EPOPROSTENOL
     Dosage: 18 NG/KG, PER MIN
     Route: 042
  3. VELETRI [Suspect]
     Active Substance: EPOPROSTENOL
     Dosage: 21 NG/KG, PER MIN
     Route: 042
  4. TADALAFIL. [Concomitant]
     Active Substance: TADALAFIL

REACTIONS (13)
  - Feeding disorder [Recovered/Resolved]
  - Nausea [Unknown]
  - Headache [Unknown]
  - Micturition urgency [Unknown]
  - Vomiting [Recovered/Resolved]
  - Constipation [Unknown]
  - Catheter site rash [Unknown]
  - Catheter site pruritus [Unknown]
  - Diarrhoea [Unknown]
  - Abdominal pain upper [Unknown]
  - Pain in extremity [Unknown]
  - Muscular weakness [Not Recovered/Not Resolved]
  - Peripheral venous disease [Not Recovered/Not Resolved]
